FAERS Safety Report 25278414 (Version 3)
Quarter: 2025Q2

REPORT INFORMATION
  Report Type: Spontaneous
  Country: US (occurrence: US)
  Receive Date: 20250507
  Receipt Date: 20250520
  Transmission Date: 20250717
  Serious: No
  Sender: BAYER HEALTHCARE PHARMACEUTICALS INC.
  Company Number: US-BAYER-2025A060614

PATIENT
  Age: 45 Year
  Sex: Female

DRUGS (4)
  1. CLIMARA PRO [Suspect]
     Active Substance: ESTRADIOL\LEVONORGESTREL
     Indication: Menopause
     Route: 062
     Dates: start: 202410
  2. LEVOTHYROXINE [Concomitant]
     Active Substance: LEVOTHYROXINE
     Indication: Hypothyroidism
     Dates: start: 2013
  3. LISINOPRIL [Concomitant]
     Active Substance: LISINOPRIL
     Indication: Hypertension
     Dates: start: 2023
  4. PHENTERMINE [Concomitant]
     Active Substance: PHENTERMINE
     Indication: Attention deficit hyperactivity disorder
     Dates: start: 2012

REACTIONS (3)
  - Device adhesion issue [Not Recovered/Not Resolved]
  - Product physical issue [None]
  - Therapeutic product effect decreased [None]
